FAERS Safety Report 16879412 (Version 1)
Quarter: 2019Q4

REPORT INFORMATION
  Report Type: Spontaneous
  Country: ES (occurrence: ES)
  Receive Date: 20191003
  Receipt Date: 20191003
  Transmission Date: 20200122
  Serious: Yes (Hospitalization)
  Sender: FDA-Public Use
  Company Number: ES-SUN PHARMACEUTICAL INDUSTRIES LTD-2019RR-222100

PATIENT
  Age: 75 Year
  Sex: Female

DRUGS (3)
  1. DICLOFENACO [Suspect]
     Active Substance: DICLOFENAC
     Indication: ARTHRALGIA
     Dosage: ()
     Route: 048
     Dates: start: 200708, end: 20071121
  2. TERTENSIF 2,5 MG COMPRIMIDOS RECUBIERTOS CON PELICULA, 30 COMPRIMIDOS [Concomitant]
     Indication: HYPERTENSION
     Dosage: ()
     Route: 048
     Dates: start: 200711, end: 20071121
  3. OMEPRAZOLE. [Suspect]
     Active Substance: OMEPRAZOLE
     Indication: ARTHRALGIA
     Dosage: ()
     Route: 048
     Dates: start: 200708, end: 20071121

REACTIONS (2)
  - Acute kidney injury [Recovered/Resolved]
  - Tubulointerstitial nephritis [Recovered/Resolved]

NARRATIVE: CASE EVENT DATE: 20071121
